FAERS Safety Report 5845292-7 (Version None)
Quarter: 2008Q3

REPORT INFORMATION
  Report Type: 
  Country: None (occurrence: None)
  Receive Date: 20080814
  Receipt Date: 20080812
  Transmission Date: 20090109
  Serious: Yes (Other)
  Sender: FDA-Public Use
  Company Number: US-ASTRAZENECA-2008UW15959

PATIENT
  Age: 45 Year
  Sex: Female

DRUGS (2)
  1. FASLODEX [Suspect]
     Indication: BREAST CANCER METASTATIC
     Route: 030
  2. ZOMETA [Concomitant]
     Dosage: TAKEN MONTHLY AFTER FASLODEX INJECTIONS

REACTIONS (4)
  - CHEST DISCOMFORT [None]
  - EYE DISORDER [None]
  - FACE OEDEMA [None]
  - FLUSHING [None]
